FAERS Safety Report 24788404 (Version 3)
Quarter: 2025Q1

REPORT INFORMATION
  Report Type: Report from Study
  Country: IN (occurrence: IN)
  Receive Date: 20241230
  Receipt Date: 20250101
  Transmission Date: 20250409
  Serious: Yes (Death, Hospitalization, Other)
  Sender: ROCHE
  Company Number: IN-ROCHE-10000162929

PATIENT
  Age: 74 Year
  Sex: Male

DRUGS (1)
  1. TECENTRIQ [Suspect]
     Active Substance: ATEZOLIZUMAB
     Indication: Hepatocellular carcinoma
     Route: 042
     Dates: start: 20241021

REACTIONS (18)
  - Death [Fatal]
  - Arthralgia [Unknown]
  - Fatigue [Unknown]
  - Gait disturbance [Unknown]
  - Memory impairment [Unknown]
  - Metastases to liver [Unknown]
  - Off label use [Unknown]
  - Hepatic atrophy [Unknown]
  - Prostatomegaly [Unknown]
  - Bladder hypertrophy [Unknown]
  - Pleural effusion [Unknown]
  - Neoplasm [Unknown]
  - Retroperitoneal lymphadenopathy [Unknown]
  - Ascites [Unknown]
  - Splenomegaly [Unknown]
  - Urinary retention [Unknown]
  - Abdominal cavity drainage [Unknown]
  - Adrenal neoplasm [Unknown]

NARRATIVE: CASE EVENT DATE: 20241021
